FAERS Safety Report 8187969-7 (Version None)
Quarter: 2012Q1

REPORT INFORMATION
  Report Type: 
  Country: None (occurrence: None)
  Receive Date: 20120306
  Receipt Date: 20120224
  Transmission Date: 20120608
  Serious: Yes (Hospitalization, Other)
  Sender: FDA-Public Use
  Company Number: US-ELI_LILLY_AND_COMPANY-US201202008390

PATIENT
  Sex: Female

DRUGS (3)
  1. HUMALOG [Suspect]
     Dosage: 10 U, UNKNOWN
  2. HUMALOG [Suspect]
     Indication: DIABETES MELLITUS
     Dosage: 10 U, UNKNOWN
  3. HUMALOG [Suspect]
     Dosage: 10 U, UNKNOWN

REACTIONS (2)
  - EXPIRED DRUG ADMINISTERED [None]
  - MYOCARDIAL INFARCTION [None]
